FAERS Safety Report 8824346 (Version 2)
Quarter: 2012Q4

REPORT INFORMATION
  Report Type: 
  Country: US (occurrence: US)
  Receive Date: 20121004
  Receipt Date: 20121004
  Transmission Date: 20130627
  Serious: Yes (Hospitalization)
  Sender: FDA-Public Use
  Company Number: US-BAYER-2012-098406

PATIENT
  Age: 29 Year
  Sex: Female

DRUGS (4)
  1. YAZ [Suspect]
     Dosage: UNK
     Dates: start: 20030101, end: 201109
  2. GIANVI [Suspect]
     Dosage: UNK
     Dates: end: 201109
  3. YASMIN [Suspect]
     Dosage: UNK
     Dates: start: 20040716, end: 201109
  4. HYDROCODONE [Concomitant]
     Indication: PAIN
     Dosage: UNK

REACTIONS (12)
  - Pulmonary embolism [None]
  - Chest pain [None]
  - Palpitations [None]
  - Anaemia [None]
  - Fear [None]
  - Quality of life decreased [None]
  - Pain [None]
  - General physical health deterioration [None]
  - Injury [None]
  - Anxiety [None]
  - Anhedonia [None]
  - Emotional distress [None]
